FAERS Safety Report 10475938 (Version 1)
Quarter: 2014Q3

REPORT INFORMATION
  Report Type: Spontaneous
  Country: US (occurrence: None)
  Receive Date: 20140923
  Receipt Date: 20140923
  Transmission Date: 20150326
  Serious: Yes (Hospitalization)
  Sender: FDA-Public Use
  Company Number: 20140610

PATIENT
  Age: 40 Year
  Sex: Female

DRUGS (1)
  1. PROGESTERONE. [Suspect]
     Active Substance: PROGESTERONE
     Indication: LUTEAL PHASE DEFICIENCY
     Route: 030

REACTIONS (4)
  - Dyspnoea exertional [None]
  - Pneumonia [None]
  - Eosinophilic pneumonia [None]
  - Oxygen saturation decreased [None]
